FAERS Safety Report 21243595 (Version 1)
Quarter: 2022Q3

REPORT INFORMATION
  Report Type: Report from Study
  Country: US (occurrence: None)
  Receive Date: 20220823
  Receipt Date: 20220823
  Transmission Date: 20221027
  Serious: Yes (Death)
  Sender: FDA-Public Use
  Company Number: 2022A292286

PATIENT
  Age: 28060 Day
  Sex: Male
  Weight: 66 kg

DRUGS (4)
  1. CALQUENCE [Suspect]
     Active Substance: ACALABRUTINIB
     Indication: Mantle cell lymphoma
     Route: 048
     Dates: end: 20220816
  2. VITAMIN B12 [Concomitant]
     Active Substance: CYANOCOBALAMIN
     Route: 065
  3. VITAMIN C [Concomitant]
     Active Substance: ASCORBIC ACID
     Route: 065
  4. VITAMIN D3 [Concomitant]
     Active Substance: CHOLECALCIFEROL
     Route: 065

REACTIONS (1)
  - Death [Fatal]

NARRATIVE: CASE EVENT DATE: 20220816
